FAERS Safety Report 7061810-8 (Version None)
Quarter: 2010Q4

REPORT INFORMATION
  Report Type: 
  Country: None (occurrence: None)
  Receive Date: 20101026
  Receipt Date: 20101022
  Transmission Date: 20110411
  Serious: Yes (Death, Hospitalization)
  Sender: FDA-Public Use
  Company Number: US-GILEAD-2010-0032691

PATIENT
  Sex: Female

DRUGS (9)
  1. LETAIRIS [Suspect]
     Indication: PULMONARY ARTERIAL HYPERTENSION
     Route: 048
     Dates: start: 20080304, end: 20101015
  2. COUMADIN [Concomitant]
  3. ASPIRIN [Concomitant]
  4. LIPITOR [Concomitant]
  5. POTASSIUM CHLORIDE [Concomitant]
  6. LEVSIN [Concomitant]
  7. CELEXA [Concomitant]
  8. AMITRIPTYLINE HCL [Concomitant]
  9. LEVOTHYROXINE [Concomitant]

REACTIONS (3)
  - DEATH [None]
  - PULMONARY THROMBOSIS [None]
  - THROMBOSIS [None]
